FAERS Safety Report 15784252 (Version 2)
Quarter: 2019Q1

REPORT INFORMATION
  Report Type: Spontaneous
  Country: US (occurrence: US)
  Receive Date: 20190103
  Receipt Date: 20190115
  Transmission Date: 20190417
  Serious: No
  Sender: FDA-Public Use
  Company Number: US-HORIZON-DUE-0748-2018

PATIENT
  Age: 61 Year
  Sex: Male

DRUGS (2)
  1. MELOXICAM. [Concomitant]
     Active Substance: MELOXICAM
  2. DUEXIS [Suspect]
     Active Substance: FAMOTIDINE\IBUPROFEN
     Indication: SCIATICA
     Dosage: 1 TABLET 3 TIMES A DAY
     Dates: start: 20181219, end: 20181220

REACTIONS (4)
  - Insomnia [Unknown]
  - Off label use [Unknown]
  - Pain [Unknown]
  - Inability to afford medication [Unknown]
